FAERS Safety Report 6868767-0 (Version None)
Quarter: 2010Q3

REPORT INFORMATION
  Report Type: 
  Country: None (occurrence: None)
  Receive Date: 20100722
  Receipt Date: 20080802
  Transmission Date: 20110219
  Serious: No
  Sender: FDA-Public Use
  Company Number: US-PFIZER INC-2008052986

PATIENT
  Sex: Female

DRUGS (1)
  1. CHANTIX [Suspect]
     Indication: TOBACCO ABUSE
     Route: 048

REACTIONS (3)
  - ABDOMINAL DISCOMFORT [None]
  - ABNORMAL DREAMS [None]
  - SLEEP DISORDER [None]
